FAERS Safety Report 8324842-5 (Version None)
Quarter: 2012Q2

REPORT INFORMATION
  Report Type: 
  Country: None (occurrence: None)
  Receive Date: 20120501
  Receipt Date: 20120424
  Transmission Date: 20120825
  Serious: Yes (Other)
  Sender: FDA-Public Use
  Company Number: US-UCBSA-055983

PATIENT
  Age: 40 Year
  Sex: Female

DRUGS (3)
  1. AMOXICILLIN [Concomitant]
     Indication: OROPHARYNGEAL PAIN
     Dates: start: 20120418
  2. KEPPRA XR [Suspect]
     Indication: CONVULSION
     Route: 048
  3. KEPPRA XR [Suspect]
     Dosage: PREVIOUS DOSE
     Dates: start: 20060101

REACTIONS (2)
  - GRAND MAL CONVULSION [None]
  - OROPHARYNGEAL PAIN [None]
